FAERS Safety Report 4986969-5 (Version None)
Quarter: 2006Q2

REPORT INFORMATION
  Report Type: 
  Country: None (occurrence: None)
  Receive Date: 20060501
  Receipt Date: 20051219
  Transmission Date: 20061013
  Serious: Yes (Hospitalization)
  Sender: FDA-Public Use
  Company Number: US-BRISTOL-MYERS SQUIBB COMPANY-13222476

PATIENT
  Age: 39 Year
  Sex: Female
  Weight: 51 kg

DRUGS (2)
  1. HYDROXYUREA [Suspect]
  2. VANCOMYCIN [Concomitant]
     Dates: start: 20050829

REACTIONS (2)
  - CANDIDIASIS [None]
  - ESCHERICHIA BACTERAEMIA [None]
